FAERS Safety Report 9416289 (Version 3)
Quarter: 2013Q3

REPORT INFORMATION
  Report Type: Report from Study
  Country: GB (occurrence: GB)
  Receive Date: 20130724
  Receipt Date: 20130916
  Transmission Date: 20140515
  Serious: Yes (Hospitalization, Other)
  Sender: FDA-Public Use
  Company Number: GB-BRISTOL-MYERS SQUIBB COMPANY-19106012

PATIENT
  Age: 60 Year
  Sex: Male
  Weight: 67 kg

DRUGS (10)
  1. IPILIMUMAB [Suspect]
     Indication: SMALL CELL LUNG CANCER
     Dosage: TOTAL DOSE-670MG.RECENT DOSE/INT:23NOV12
     Dates: start: 20121123
  2. CARBOPLATIN [Suspect]
     Indication: SMALL CELL LUNG CANCER
     Dosage: RECENT DOSE/INT:23NOV12
     Dates: start: 20121026
  3. ETOPOSIDE [Suspect]
     Indication: SMALL CELL LUNG CANCER
     Dosage: RECENT DOSE/INT:23NOV12
     Dates: start: 20121026
  4. LANSOPRAZOLE [Concomitant]
     Route: 048
  5. TRAMADOL [Concomitant]
  6. ADCAL-D3 [Concomitant]
  7. PREDNISOLONE [Concomitant]
  8. ZOPICLONE [Concomitant]
  9. PARACETAMOL [Concomitant]
  10. NEFOPAM HCL [Concomitant]
     Dosage: 1DF=90-120MG

REACTIONS (7)
  - Colitis [Recovered/Resolved]
  - Neutrophil count decreased [Recovered/Resolved]
  - Neck pain [Recovered/Resolved with Sequelae]
  - Back pain [Recovered/Resolved with Sequelae]
  - Muscular weakness [Recovered/Resolved with Sequelae]
  - Cold sweat [Recovered/Resolved with Sequelae]
  - Neuropathy peripheral [Recovered/Resolved with Sequelae]
